FAERS Safety Report 21866635 (Version 1)
Quarter: 2023Q1

REPORT INFORMATION
  Report Type: Spontaneous
  Country: US (occurrence: US)
  Receive Date: 20230116
  Receipt Date: 20230116
  Transmission Date: 20230418
  Serious: No
  Sender: FDA-Public Use
  Company Number: US-INTRA-CELLULAR THERAPIES, INC.-2022ICT01379

PATIENT
  Age: 40 Year
  Sex: Female
  Weight: 89.796 kg

DRUGS (4)
  1. CAPLYTA [Suspect]
     Active Substance: LUMATEPERONE
     Indication: Psychotic disorder
     Dosage: 42 MG, 1X/DAY
     Route: 048
     Dates: start: 20211122
  2. CAPLYTA [Suspect]
     Active Substance: LUMATEPERONE
     Indication: Depression
  3. HALDOL [Concomitant]
     Active Substance: HALOPERIDOL
  4. VISTARIL (HYDROXYZINE HYDROCHLORIDE) [Concomitant]
     Active Substance: HYDROXYZINE HYDROCHLORIDE

REACTIONS (2)
  - Burning sensation [Recovering/Resolving]
  - Off label use [Recovered/Resolved]

NARRATIVE: CASE EVENT DATE: 20211122
